FAERS Safety Report 8742355 (Version 3)
Quarter: 2013Q1

REPORT INFORMATION
  Report Type: Spontaneous
  Country: US (occurrence: US)
  Receive Date: 20120824
  Receipt Date: 20130328
  Transmission Date: 20140127
  Serious: Yes (Hospitalization)
  Sender: FDA-Public Use
  Company Number: US-B.I. PHARMACEUTICALS,INC./RIDGEFIELD-2012-BP-19938BP

PATIENT
  Age: 70 Year
  Sex: Male
  Weight: 90.72 kg

DRUGS (9)
  1. PRADAXA [Suspect]
     Indication: ANTICOAGULANT THERAPY
     Dosage: 300 MG
     Dates: start: 20110211, end: 20110817
  2. PRADAXA [Suspect]
     Indication: ATRIAL FIBRILLATION
  3. LIPITOR [Concomitant]
     Dosage: 20 MG
     Dates: start: 2007
  4. METOPROLOL [Concomitant]
     Dosage: 50 MG
     Dates: start: 2007
  5. NEXIUM [Concomitant]
     Dates: start: 2007
  6. ASPIRIN [Concomitant]
     Dosage: 325 MG
     Dates: start: 2005
  7. MULTAQ [Concomitant]
     Indication: SINUS RHYTHM
     Dosage: 400 MG
     Dates: start: 201102, end: 201112
  8. FLONASE [Concomitant]
  9. DOXYCYCLINE [Concomitant]

REACTIONS (3)
  - Subdural haematoma [Unknown]
  - Cerebral haemorrhage [Unknown]
  - Fall [Unknown]
